FAERS Safety Report 25993113 (Version 1)
Quarter: 2025Q4

REPORT INFORMATION
  Report Type: Spontaneous
  Country: CN (occurrence: CN)
  Receive Date: 20251104
  Receipt Date: 20251104
  Transmission Date: 20260118
  Serious: Yes (Death, Life-Threatening, Hospitalization, Other)
  Sender: UNICHEM
  Company Number: CN-UNICHEM LABORATORIES LIMITED-UNI-2025-CN-003619

PATIENT

DRUGS (5)
  1. AMIODARONE [Suspect]
     Active Substance: AMIODARONE
     Indication: Atrial flutter
     Dosage: 150 MILLIGRAM (LOADING DOSE)
     Route: 042
  2. AMIODARONE [Suspect]
     Active Substance: AMIODARONE
     Indication: Wolff-Parkinson-White syndrome
     Dosage: 900 MILLIGRAMS (LOADING DOSE) WITHIN THE NEXT 24 H
     Route: 042
  3. ASPIRIN [Concomitant]
     Active Substance: ASPIRIN
     Indication: Hypertension
     Dosage: UNK
     Route: 065
  4. ROSUVASTATIN [Concomitant]
     Active Substance: ROSUVASTATIN
     Indication: Product used for unknown indication
     Dosage: UNK
     Route: 065
  5. DONEPEZIL [Concomitant]
     Active Substance: DONEPEZIL
     Indication: Vascular dementia
     Dosage: UNK
     Route: 065

REACTIONS (1)
  - Multiple organ dysfunction syndrome [Fatal]
